FAERS Safety Report 24361788 (Version 1)
Quarter: 2024Q3

REPORT INFORMATION
  Report Type: Report from Study
  Country: US (occurrence: US)
  Receive Date: 20240925
  Receipt Date: 20240925
  Transmission Date: 20241017
  Serious: Yes (Other)
  Sender: BAYER
  Company Number: US-BAYER-2024A135769

PATIENT

DRUGS (1)
  1. ALKA-SELTZER HANGOVER RELIEF [Suspect]
     Active Substance: ASPIRIN\CAFFEINE

REACTIONS (1)
  - Shock [Unknown]
